FAERS Safety Report 13162327 (Version 1)
Quarter: 2017Q1

REPORT INFORMATION
  Report Type: Spontaneous
  Country: US (occurrence: US)
  Receive Date: 20170125
  Receipt Date: 20170125
  Transmission Date: 20170428
  Serious: Yes (Disabling)
  Sender: FDA-Public Use
  Company Number: None

PATIENT
  Age: 36 Year
  Sex: Female
  Weight: 63 kg

DRUGS (4)
  1. AVELOX [Suspect]
     Active Substance: MOXIFLOXACIN HYDROCHLORIDE
     Indication: URINARY TRACT INFECTION
     Dates: start: 20090101, end: 20140715
  2. LEVAQUIN [Suspect]
     Active Substance: LEVOFLOXACIN
  3. CIPRO [Suspect]
     Active Substance: CIPROFLOXACIN HYDROCHLORIDE
  4. AVELOX [Suspect]
     Active Substance: MOXIFLOXACIN HYDROCHLORIDE
     Indication: SINUSITIS
     Dates: start: 20090101, end: 20140715

REACTIONS (5)
  - Pain [None]
  - Contraindicated product administered [None]
  - Arthropathy [None]
  - Tendon disorder [None]
  - Movement disorder [None]

NARRATIVE: CASE EVENT DATE: 20090101
